FAERS Safety Report 13317041 (Version 1)
Quarter: 2017Q1

REPORT INFORMATION
  Report Type: Spontaneous
  Country: US (occurrence: US)
  Receive Date: 20170308
  Receipt Date: 20170308
  Transmission Date: 20170428
  Serious: No
  Sender: FDA-Public Use
  Company Number: US-AMGEN-USASP2016049173

PATIENT
  Age: 76 Year
  Sex: Female

DRUGS (4)
  1. LOPID TC [Concomitant]
     Dosage: UNK
  2. SENSIPAR [Suspect]
     Active Substance: CINACALCET HYDROCHLORIDE
     Indication: BLOOD CALCIUM ABNORMAL
     Dosage: 30 MG, UNK
     Route: 048
     Dates: start: 201602
  3. WARFARIN [Concomitant]
     Active Substance: WARFARIN
     Indication: GOUT
     Dosage: UNK
  4. ALLOPURINOL. [Concomitant]
     Active Substance: ALLOPURINOL
     Indication: GOUT
     Dosage: UNK

REACTIONS (2)
  - Wrong technique in product usage process [Unknown]
  - Diarrhoea [Recovering/Resolving]
